FAERS Safety Report 19829749 (Version 1)
Quarter: 2021Q3

REPORT INFORMATION
  Report Type: Spontaneous
  Country: US (occurrence: US)
  Receive Date: 20210914
  Receipt Date: 20210914
  Transmission Date: 20211014
  Serious: No
  Sender: FDA-Public Use
  Company Number: None

PATIENT
  Age: 66 Year
  Sex: Female
  Weight: 90 kg

DRUGS (6)
  1. VITAMIN B12 [Concomitant]
     Active Substance: CYANOCOBALAMIN
  2. STELARA [Suspect]
     Active Substance: USTEKINUMAB
     Indication: CROHN^S DISEASE
     Dosage: ?          QUANTITY:4 INJECTION(S);OTHER FREQUENCY:1 TIME;?
     Route: 042
     Dates: start: 20210817, end: 20210817
  3. IRON [Concomitant]
     Active Substance: IRON
  4. JANSSEN COVID?19 VACCINE [Suspect]
     Active Substance: AD26.COV2.S
     Indication: COVID-19 IMMUNISATION
     Dosage: ?          QUANTITY:1 INJECTION(S);OTHER FREQUENCY:1 TIME;?
     Route: 058
     Dates: start: 20210320, end: 20210320
  5. PROBIOTIC AND B3 [Concomitant]
  6. CBD AND MELATONIN [Concomitant]

REACTIONS (7)
  - Influenza like illness [None]
  - Pain [None]
  - Peripheral swelling [None]
  - Joint swelling [None]
  - Musculoskeletal stiffness [None]
  - Feeling hot [None]
  - Pain in extremity [None]

NARRATIVE: CASE EVENT DATE: 20210831
